FAERS Safety Report 4964879-7 (Version None)
Quarter: 2006Q2

REPORT INFORMATION
  Report Type: 
  Country: None (occurrence: None)
  Receive Date: 20060403
  Receipt Date: 20060321
  Transmission Date: 20061013
  Serious: Yes (Hospitalization, Other)
  Sender: FDA-Public Use
  Company Number: HQWYE467022MAR06

PATIENT
  Age: 18 Month
  Sex: Female

DRUGS (7)
  1. ADVIL [Suspect]
     Indication: PYREXIA
     Dosage: ORAL
     Route: 048
     Dates: start: 20051219
  2. OMEPRAZOLE [Suspect]
     Indication: GASTROOESOPHAGEAL REFLUX DISEASE
     Dates: start: 20051212
  3. MOTILIUM [Suspect]
     Indication: GASTROOESOPHAGEAL REFLUX DISEASE
     Dates: start: 20051212
  4. PEDIAZOLE [Suspect]
     Indication: BRONCHITIS
  5. PEDIAZOLE [Suspect]
     Indication: RHINITIS
  6. PRIORIX VACCINE (MEASLES, MUMPS AND RUBELLA VACCINE,) [Suspect]
     Dosage: ONE INJECTION IM
     Route: 030
     Dates: start: 20051219, end: 20051219
  7. ACETAMINOPHEN [Concomitant]

REACTIONS (8)
  - AGRANULOCYTOSIS [None]
  - ASTHENIA [None]
  - BLOOD LACTATE DEHYDROGENASE INCREASED [None]
  - FEBRILE NEUTROPENIA [None]
  - HUMAN HERPESVIRUS 6 INFECTION [None]
  - LYMPHADENOPATHY [None]
  - OTITIS MEDIA [None]
  - PHARYNGEAL ERYTHEMA [None]
